FAERS Safety Report 7672908-5 (Version None)
Quarter: 2011Q3

REPORT INFORMATION
  Report Type: 
  Country: None (occurrence: None)
  Receive Date: 20110809
  Receipt Date: 20110725
  Transmission Date: 20111222
  Serious: Yes (Other)
  Sender: FDA-Public Use
  Company Number: CA-AMGEN-CANSP2011037561

PATIENT
  Age: 44 Year
  Sex: Female

DRUGS (9)
  1. HUMIRA [Suspect]
     Dosage: UNK
     Route: 058
  2. GABAPENTIN [Concomitant]
     Dosage: UNK
     Route: 065
  3. LANSOPRAZOLE [Concomitant]
     Dosage: UNK
     Route: 065
  4. PREDNISONE [Concomitant]
     Dosage: UNK
     Route: 065
  5. ENBREL [Suspect]
     Dosage: 50 MG, QWK
     Route: 058
  6. ENBREL [Suspect]
  7. PIROXICAM [Concomitant]
     Dosage: UNK
     Route: 065
  8. OXYCODONE HCL [Concomitant]
     Dosage: UNK
     Route: 065
  9. REMICADE [Concomitant]
     Dosage: UNK
     Route: 042

REACTIONS (7)
  - MUSCULAR WEAKNESS [None]
  - BLINDNESS [None]
  - MUSCULOSKELETAL PAIN [None]
  - MULTIPLE SCLEROSIS [None]
  - DIPLOPIA [None]
  - VISION BLURRED [None]
  - HYPOAESTHESIA [None]
